FAERS Safety Report 8771873 (Version 1)
Quarter: 2012Q4

REPORT INFORMATION
  Report Type: 
  Country: US (occurrence: US)
  Receive Date: 20120906
  Receipt Date: 20120906
  Transmission Date: 20130627
  Serious: Yes (Other)
  Sender: FDA-Public Use
  Company Number: US-B.I. PHARMACEUTICALS,INC./RIDGEFIELD-2012-BP-21339BP

PATIENT
  Sex: Female
  Weight: 54 kg

DRUGS (5)
  1. PRADAXA [Suspect]
     Indication: ATRIAL FIBRILLATION
     Dosage: 150 mg
     Route: 048
     Dates: start: 201105, end: 201112
  2. MAXAIR [Concomitant]
     Indication: DYSPNOEA
     Dates: start: 2010
  3. FLOVENT [Concomitant]
     Indication: DYSPNOEA
     Dates: start: 2010
  4. CRESTOR [Concomitant]
     Indication: HYPERTENSION
     Dates: start: 2008
  5. INSPRA [Concomitant]
     Indication: DYSPNOEA
     Dosage: 25 mg
     Route: 048
     Dates: start: 2008

REACTIONS (4)
  - Haemorrhage [Recovered/Resolved]
  - Hypertension [Not Recovered/Not Resolved]
  - Sluggishness [Not Recovered/Not Resolved]
  - Dyspnoea [Not Recovered/Not Resolved]
